FAERS Safety Report 17546093 (Version 1)
Quarter: 2020Q1

REPORT INFORMATION
  Report Type: Spontaneous
  Country: CL (occurrence: CL)
  Receive Date: 20200316
  Receipt Date: 20200316
  Transmission Date: 20200409
  Serious: Yes (Other)
  Sender: FDA-Public Use
  Company Number: CL-MYLANLABS-2020M1026764

PATIENT
  Age: 28 Year
  Sex: Female

DRUGS (1)
  1. LEPONEX [Suspect]
     Active Substance: CLOZAPINE
     Indication: PRODUCT USED FOR UNKNOWN INDICATION
     Dosage: 100 MILLIGRAM, QD
     Route: 048

REACTIONS (6)
  - Mean cell volume decreased [Unknown]
  - Mean cell haemoglobin increased [Unknown]
  - Eosinophil percentage decreased [Unknown]
  - Red blood cell count increased [Unknown]
  - Anaemia [Not Recovered/Not Resolved]
  - Haematocrit decreased [Unknown]

NARRATIVE: CASE EVENT DATE: 20200227
